FAERS Safety Report 8175901-1 (Version None)
Quarter: 2012Q1

REPORT INFORMATION
  Report Type: 
  Country: None (occurrence: None)
  Receive Date: 20120228
  Receipt Date: 20120213
  Transmission Date: 20120608
  Serious: Yes (Life-Threatening)
  Sender: FDA-Public Use
  Company Number: 1000028535

PATIENT
  Age: 94 Year
  Sex: Female

DRUGS (7)
  1. PARACETAMOL (PARACETAMOL) (PARACETAMOL) [Concomitant]
  2. WARFARIN SODIUM [Concomitant]
  3. MEMANTINE HYDROCHLORIDE [Suspect]
     Indication: DEMENTIA ALZHEIMER'S TYPE
     Dosage: 5 MG  (5 MG, 1 IN 1 D) ,ORAL
     Route: 048
  4. LISINOPRIL [Concomitant]
  5. PRAMIPEXOLE ( PRAMIPEXOLE) ( PRAMIPEXOLE) [Concomitant]
  6. DIGOXIN [Concomitant]
  7. FUROSEMIDE [Concomitant]

REACTIONS (1)
  - CARDIAC FAILURE CONGESTIVE [None]
